FAERS Safety Report 5616693-7 (Version None)
Quarter: 2008Q1

REPORT INFORMATION
  Report Type: 
  Country: None (occurrence: None)
  Receive Date: 20080206
  Receipt Date: 20080206
  Transmission Date: 20080703
  Serious: Yes (Disabling)
  Sender: FDA-Public Use
  Company Number: None

PATIENT
  Age: 48 Year
  Sex: Female
  Weight: 69.8539 kg

DRUGS (1)
  1. AZMACORT [Suspect]
     Indication: CHRONIC OBSTRUCTIVE PULMONARY DISEASE
     Dosage: TWO PUFFS TWICE A DAY  TWICE DAILY
     Dates: start: 20080112, end: 20080202

REACTIONS (2)
  - BACK PAIN [None]
  - MYALGIA [None]
